FAERS Safety Report 15417932 (Version 7)
Quarter: 2023Q1

REPORT INFORMATION
  Report Type: Other
  Country: US (occurrence: None)
  Receive Date: 20180924
  Receipt Date: 20230117
  Transmission Date: 20230417
  Serious: Yes (Other)
  Sender: FDA-Public Use
  Company Number: US-ROCHE-2186878

PATIENT
  Age: 38 Year
  Sex: Female
  Weight: 53.118 kg

DRUGS (3)
  1. OCREVUS [Suspect]
     Active Substance: OCRELIZUMAB
     Indication: Relapsing multiple sclerosis
     Dosage: SECOND INFUSION WAS GIVEN ON 26/MAR/2018?MOST RECENT DOSE 14/JAN/2019
     Route: 042
     Dates: start: 2018
  2. OCREVUS [Suspect]
     Active Substance: OCRELIZUMAB
     Indication: Secondary progressive multiple sclerosis
     Route: 042
  3. OCREVUS [Suspect]
     Active Substance: OCRELIZUMAB
     Dosage: ONGOING-YES
     Route: 042
     Dates: start: 20180312

REACTIONS (12)
  - Bronchitis [Not Recovered/Not Resolved]
  - Urinary tract infection [Recovered/Resolved]
  - Pyrexia [Recovered/Resolved]
  - Tremor [Not Recovered/Not Resolved]
  - Chills [Unknown]
  - Oral herpes [Recovered/Resolved]
  - Rash [Unknown]
  - Skin infection [Recovered/Resolved]
  - Cough [Not Recovered/Not Resolved]
  - Feeling cold [Recovered/Resolved]
  - Off label use [Unknown]
  - Sinus congestion [Not Recovered/Not Resolved]

NARRATIVE: CASE EVENT DATE: 20180312
